FAERS Safety Report 6221459-3 (Version None)
Quarter: 2009Q2

REPORT INFORMATION
  Report Type: 
  Country: None (occurrence: None)
  Receive Date: 20090610
  Receipt Date: 20090528
  Transmission Date: 20091009
  Serious: Yes (Other)
  Sender: FDA-Public Use
  Company Number: US-ELI_LILLY_AND_COMPANY-US200905005688

PATIENT
  Age: 37 Year
  Sex: Male

DRUGS (8)
  1. HUMALOG [Suspect]
  2. GEMZAR [Suspect]
     Indication: LUNG CARCINOMA CELL TYPE UNSPECIFIED STAGE IV
     Dosage: UNK, UNK
     Dates: start: 20080301
  3. GEMZAR [Suspect]
     Dosage: UNK, WEEKLY (1/W)
     Dates: start: 20080401
  4. CYMBALTA [Suspect]
  5. CIALIS [Suspect]
     Indication: ERECTILE DYSFUNCTION
  6. ACTOS [Concomitant]
  7. LANTUS [Concomitant]
  8. RAMIPRIL [Concomitant]

REACTIONS (11)
  - ARTHRALGIA [None]
  - BLADDER DISCOMFORT [None]
  - ERECTILE DYSFUNCTION [None]
  - FATIGUE [None]
  - HYPERHIDROSIS [None]
  - LUNG CARCINOMA CELL TYPE UNSPECIFIED STAGE IV [None]
  - MALAISE [None]
  - METASTASES TO BONE [None]
  - MYALGIA [None]
  - POLLAKIURIA [None]
  - URINARY RETENTION [None]
